FAERS Safety Report 16905155 (Version 3)
Quarter: 2019Q4

REPORT INFORMATION
  Report Type: Spontaneous
  Country: US (occurrence: US)
  Receive Date: 20191010
  Receipt Date: 20191217
  Transmission Date: 20200122
  Serious: No
  Sender: FDA-Public Use
  Company Number: US-PFIZER INC-2019434870

PATIENT
  Age: 65 Year
  Sex: Female
  Weight: 86.17 kg

DRUGS (7)
  1. IBRANCE [Suspect]
     Active Substance: PALBOCICLIB
     Indication: BREAST CANCER
     Dosage: 125 MG, CYCLIC
     Dates: start: 2017
  2. LOSARTAN. [Concomitant]
     Active Substance: LOSARTAN
     Indication: BLOOD PRESSURE MEASUREMENT
     Dosage: UNK, 1X/DAY
     Dates: start: 2017
  3. CARVEDIOL [Concomitant]
     Active Substance: CARVEDILOL
     Indication: BLOOD PRESSURE MEASUREMENT
     Dosage: UNK, 2X/DAY
     Dates: start: 2017
  4. IBRANCE [Suspect]
     Active Substance: PALBOCICLIB
     Indication: BONE CANCER
  5. IBRANCE [Suspect]
     Active Substance: PALBOCICLIB
     Indication: BREAST CANCER STAGE I
  6. XGEVA [Concomitant]
     Active Substance: DENOSUMAB
     Dosage: UNK (EVERY 4TH FRI)
     Dates: start: 2017
  7. FASLODEX [Concomitant]
     Active Substance: FULVESTRANT
     Dosage: UNK (EVERY 4TH FRI)
     Dates: start: 2017

REACTIONS (1)
  - Neoplasm progression [Unknown]

NARRATIVE: CASE EVENT DATE: 2017
